FAERS Safety Report 7691904-5 (Version None)
Quarter: 2011Q3

REPORT INFORMATION
  Report Type: 
  Country: None (occurrence: None)
  Receive Date: 20110818
  Receipt Date: 20110801
  Transmission Date: 20111222
  Serious: Yes (Other)
  Sender: FDA-Public Use
  Company Number: PHHY2011BR70586

PATIENT
  Sex: Female

DRUGS (6)
  1. SIMVASTATIN [Concomitant]
  2. ASPIRIN [Concomitant]
     Dosage: UNK UKN, UNK
  3. DIOVAN [Suspect]
     Dosage: UNK UKN, UNK
  4. DEZAFIDRATE [Concomitant]
     Dosage: UNK UKN, UNK
  5. MODURETIC 5-50 [Concomitant]
  6. METFORMIN [Suspect]
     Dosage: UNK UKN, UNK

REACTIONS (1)
  - SPINAL DISORDER [None]
